FAERS Safety Report 24594722 (Version 1)
Quarter: 2024Q4

REPORT INFORMATION
  Report Type: Spontaneous
  Country: US (occurrence: None)
  Receive Date: 20241108
  Receipt Date: 20241108
  Transmission Date: 20250115
  Serious: Yes (Hospitalization)
  Sender: Public
  Company Number: None

PATIENT
  Sex: Female

DRUGS (6)
  1. TADALAFIL [Suspect]
     Active Substance: TADALAFIL
     Indication: Pulmonary arterial hypertension
     Dosage: FREQUENCY : DAILY;?
     Route: 048
     Dates: start: 202403
  2. ADCIRCA [Concomitant]
  3. C-FORMULATION C TOPICAL [Concomitant]
  4. REMODULIN EMGCY PRE MX (BRG) [Concomitant]
  5. LETAIRIS [Concomitant]
  6. C-TREPROSTINIL (3ML)RM [Concomitant]

REACTIONS (2)
  - Diverticulum intestinal [None]
  - Condition aggravated [None]
